FAERS Safety Report 16731716 (Version 2)
Quarter: 2019Q4

REPORT INFORMATION
  Report Type: Spontaneous
  Country: US (occurrence: US)
  Receive Date: 20190822
  Receipt Date: 20191004
  Transmission Date: 20200122
  Serious: Yes (Other)
  Sender: FDA-Public Use
  Company Number: US-SA-2019SA221299

PATIENT
  Age: 65 Year
  Sex: Female

DRUGS (1)
  1. LOVENOX [Suspect]
     Active Substance: ENOXAPARIN SODIUM
     Indication: CATHETERISATION CARDIAC
     Dosage: 80 MG, Q12H
     Route: 065

REACTIONS (6)
  - Chest discomfort [Unknown]
  - Administration site bruise [Unknown]
  - Product dose omission [Unknown]
  - Product closure removal difficult [Unknown]
  - Myocardial infarction [Unknown]
  - Injection site mass [Unknown]
